FAERS Safety Report 4415239-9 (Version None)
Quarter: 2004Q3

REPORT INFORMATION
  Report Type: 
  Country: None (occurrence: None)
  Receive Date: 20040804
  Receipt Date: 20040728
  Transmission Date: 20050211
  Serious: Yes (Other)
  Sender: FDA-Public Use
  Company Number: BR-GLAXOSMITHKLINE-B0340817A

PATIENT
  Age: 48 Year
  Sex: Male

DRUGS (4)
  1. ZIDOVUDINE [Suspect]
     Indication: HIV INFECTION
     Route: 065
     Dates: start: 19990801
  2. LAMIVUDINE [Suspect]
     Indication: HIV INFECTION
     Route: 065
     Dates: start: 19990801
  3. NELFINAVIR [Suspect]
     Indication: HIV INFECTION
     Route: 065
     Dates: start: 19990801
  4. CO-TRIMOXAZOLE [Concomitant]
     Route: 065
     Dates: start: 19990801

REACTIONS (5)
  - GRANULOMA [None]
  - IMMUNE RECONSTITUTION SYNDROME [None]
  - LEPROSY [None]
  - SKIN LESION [None]
  - SKIN ULCER [None]
